FAERS Safety Report 20638629 (Version 1)
Quarter: 2022Q1

REPORT INFORMATION
  Report Type: Spontaneous
  Country: GB (occurrence: GB)
  Receive Date: 20220325
  Receipt Date: 20220325
  Transmission Date: 20220423
  Serious: Yes (Other)
  Sender: FDA-Public Use
  Company Number: GB-NOVARTISPH-NVSC2022GB068345

PATIENT
  Sex: Female

DRUGS (1)
  1. CETIRIZINE [Suspect]
     Active Substance: CETIRIZINE HYDROCHLORIDE
     Indication: Seasonal allergy
     Dosage: 10 MG, BID (10 MG ONCE OR TWICE A DAY (TWICE A DAY WAS PRESCRIBED BY DERMATOLOGIST))
     Route: 065

REACTIONS (1)
  - Adverse drug reaction [Recovering/Resolving]
